FAERS Safety Report 5626784-2 (Version None)
Quarter: 2008Q1

REPORT INFORMATION
  Report Type: 
  Country: None (occurrence: None)
  Receive Date: 20080212
  Receipt Date: 20080128
  Transmission Date: 20080703
  Serious: Yes (Death)
  Sender: FDA-Public Use
  Company Number: B0506412A

PATIENT
  Age: 28 Year
  Sex: Male

DRUGS (2)
  1. BUPROPION HCL [Suspect]
  2. CODEINE (FORMULATION UNKNOWN)  (GENERIC) (CODEINE) [Suspect]

REACTIONS (2)
  - DRUG INTERACTION [None]
  - DRUG TOXICITY [None]
